FAERS Safety Report 4631090-9 (Version None)
Quarter: 2005Q2

REPORT INFORMATION
  Report Type: 
  Country: None (occurrence: None)
  Receive Date: 20050406
  Receipt Date: 20050406
  Transmission Date: 20051028
  Serious: No
  Sender: FDA-Public Use
  Company Number: None

PATIENT
  Age: 94 Year
  Sex: Female
  Weight: 40.4 kg

DRUGS (11)
  1. WARFARIN [Suspect]
     Indication: ATRIAL FIBRILLATION
     Dosage: 1MG QOD 1.5 MG QOD CHRONIC
     Dates: start: 20050131
  2. DULCOLAX [Concomitant]
  3. LACTOSE [Concomitant]
  4. NITROGLYCERIN [Concomitant]
  5. CALCIUM GLUCONATE [Concomitant]
  6. POTASSIUM CHLORIDE [Concomitant]
  7. OMEPRAZOLE [Concomitant]
  8. THIAMINE [Concomitant]
  9. VIT C [Concomitant]
  10. VIT E [Concomitant]
  11. ZANTAC [Concomitant]

REACTIONS (3)
  - ABDOMINAL DISTENSION [None]
  - HYPOTENSION [None]
  - RECTAL HAEMORRHAGE [None]
